FAERS Safety Report 5375365-7 (Version None)
Quarter: 2007Q2

REPORT INFORMATION
  Report Type: 
  Country: None (occurrence: None)
  Receive Date: 20070629
  Receipt Date: 20070619
  Transmission Date: 20071010
  Serious: Yes (Other)
  Sender: FDA-Public Use
  Company Number: US-PFIZER INC-2004121932

PATIENT
  Sex: Male
  Weight: 90.3 kg

DRUGS (13)
  1. CELEBREX [Suspect]
     Indication: ARTHRITIS
     Dosage: DAILY DOSE:400MG
     Route: 048
     Dates: start: 20041111, end: 20070603
  2. CELEBREX [Suspect]
     Indication: PSORIATIC ARTHROPATHY
  3. ZYRTEC [Suspect]
     Indication: SINUSITIS
     Route: 048
  4. LIPITOR [Concomitant]
     Indication: BLOOD CHOLESTEROL INCREASED
     Dosage: DAILY DOSE:20MG
     Route: 048
  5. LITHIUM CARBONATE [Concomitant]
     Indication: BIPOLAR DISORDER
     Dosage: DAILY DOSE:900MG
  6. AUGMENTIN '125' [Concomitant]
     Dosage: DAILY DOSE:1750MG
     Dates: start: 20070412, end: 20070425
  7. CLONAZEPAM [Concomitant]
     Indication: BIPOLAR DISORDER
  8. VALPROATE SODIUM [Concomitant]
     Indication: BIPOLAR DISORDER
     Dosage: DAILY DOSE:1000MG
  9. BUPROPION HYDROCHLORIDE [Concomitant]
     Indication: BIPOLAR DISORDER
     Dosage: DAILY DOSE:300MG
  10. HUMIRA [Concomitant]
     Indication: PSORIATIC ARTHROPATHY
  11. CEFOTAXIME [Concomitant]
     Dates: start: 20070514, end: 20070517
  12. PARACETAMOL [Concomitant]
     Indication: HEADACHE
     Dates: start: 20070606, end: 20070606
  13. FUROSEMIDE [Concomitant]
     Indication: OEDEMA
     Dosage: DAILY DOSE:40MG
     Dates: start: 20070604

REACTIONS (10)
  - ARTHRALGIA [None]
  - BIPOLAR DISORDER [None]
  - CHILLS [None]
  - HEADACHE [None]
  - LYMPHADENOPATHY [None]
  - NASAL CONGESTION [None]
  - OEDEMA PERIPHERAL [None]
  - PAIN [None]
  - PYREXIA [None]
  - SINUSITIS [None]
